FAERS Safety Report 5471026-4 (Version None)
Quarter: 2007Q3

REPORT INFORMATION
  Report Type: 
  Country: None (occurrence: None)
  Receive Date: 20070928
  Receipt Date: 20070919
  Transmission Date: 20080115
  Serious: Yes (Other)
  Sender: FDA-Public Use
  Company Number: B0487736A

PATIENT
  Age: 94 Year
  Sex: Female

DRUGS (9)
  1. DIGOXIN [Suspect]
     Indication: ATRIAL FIBRILLATION
     Dosage: .125MG PER DAY
     Route: 065
  2. RAMIPRIL [Concomitant]
  3. ISOSORBIDE MONONITRATE [Concomitant]
  4. SIMVASTATIN [Concomitant]
  5. CALCEOS [Concomitant]
  6. ASPIRIN [Concomitant]
  7. CO CODAMOL [Concomitant]
  8. SENNA [Concomitant]
  9. LACTULOSE [Concomitant]

REACTIONS (1)
  - FRACTURE [None]
